FAERS Safety Report 8219245-8 (Version None)
Quarter: 2012Q1

REPORT INFORMATION
  Report Type: 
  Country: None (occurrence: None)
  Receive Date: 20120319
  Receipt Date: 20120306
  Transmission Date: 20120608
  Serious: Yes (Death, Hospitalization)
  Sender: FDA-Public Use
  Company Number: CA-ELI_LILLY_AND_COMPANY-CA201203001542

PATIENT
  Age: 61 Year
  Sex: Female

DRUGS (2)
  1. ZYPREXA [Suspect]
     Indication: AGITATION
     Dosage: UNK, UNKNOWN
     Route: 065
     Dates: start: 20090424
  2. ZYPREXA [Suspect]
     Dosage: UNK, UNKNOWN
     Route: 065

REACTIONS (13)
  - PARANOIA [None]
  - CONFUSIONAL STATE [None]
  - MUSCLE RIGIDITY [None]
  - ANXIETY [None]
  - AGITATION [None]
  - PYREXIA [None]
  - DEATH [None]
  - DELIRIUM [None]
  - MUSCLE TWITCHING [None]
  - OFF LABEL USE [None]
  - LETHARGY [None]
  - OVERDOSE [None]
  - DEMENTIA [None]
